FAERS Safety Report 18146704 (Version 2)
Quarter: 2020Q3

REPORT INFORMATION
  Report Type: Spontaneous
  Country: US (occurrence: US)
  Receive Date: 20200813
  Receipt Date: 20200915
  Transmission Date: 20201103
  Serious: No
  Sender: FDA-Public Use
  Company Number: US-SA-2020SA205266

PATIENT

DRUGS (1)
  1. LANTUS [Suspect]
     Active Substance: INSULIN GLARGINE
     Dosage: 90 IU
     Route: 065

REACTIONS (3)
  - Injection site bruising [Unknown]
  - Device issue [Unknown]
  - Intentional product misuse [Unknown]
